FAERS Safety Report 7262318-7 (Version None)
Quarter: 2011Q1

REPORT INFORMATION
  Report Type: 
  Country: None (occurrence: None)
  Receive Date: 20110130
  Receipt Date: 20101128
  Transmission Date: 20110831
  Serious: No
  Sender: FDA-Public Use
  Company Number: US-ABBOTT-10P-163-0687973-00

PATIENT
  Age: 75 Year
  Sex: Female

DRUGS (9)
  1. FOLIC ACID [Concomitant]
     Indication: PRODUCT USED FOR UNKNOWN INDICATION
  2. BUMETANIDE [Concomitant]
     Indication: CARDIAC DISORDER
  3. CARVEDILOL [Concomitant]
     Indication: PRODUCT USED FOR UNKNOWN INDICATION
  4. DIOVAN [Concomitant]
     Indication: BLOOD PRESSURE
  5. MURTAQ [Concomitant]
     Indication: CARDIAC DISORDER
  6. DIDOSEM [Concomitant]
     Indication: CARDIAC DISORDER
  7. WARFARIN [Concomitant]
     Indication: CARDIAC DISORDER
  8. HUMIRA [Suspect]
     Indication: RHEUMATOID ARTHRITIS
     Dates: start: 20100901
  9. LIMSOPRACOLE [Concomitant]
     Indication: GASTRIC DISORDER

REACTIONS (1)
  - NASOPHARYNGITIS [None]
